FAERS Safety Report 14236798 (Version 1)
Quarter: 2017Q4

REPORT INFORMATION
  Report Type: Report from Study
  Country: US (occurrence: US)
  Receive Date: 20171129
  Receipt Date: 20171129
  Transmission Date: 20180321
  Serious: Yes (Death)
  Sender: FDA-Public Use
  Company Number: US-ACTELION-A-US2017-163055

PATIENT
  Age: 57 Year
  Sex: Female

DRUGS (12)
  1. WARFARIN [Concomitant]
     Active Substance: WARFARIN
  2. ALDACTONE [Concomitant]
     Active Substance: SPIRONOLACTONE
  3. LASIX [Concomitant]
     Active Substance: FUROSEMIDE
  4. ADCIRCA [Concomitant]
     Active Substance: TADALAFIL
  5. SERTRALINE [Concomitant]
     Active Substance: SERTRALINE HYDROCHLORIDE
  6. OPSUMIT [Suspect]
     Active Substance: MACITENTAN
     Indication: PULMONARY ARTERIAL HYPERTENSION
     Dosage: 10 MG, QD
     Route: 048
  7. AMBIEN [Concomitant]
     Active Substance: ZOLPIDEM TARTRATE
  8. LEVOTHYROXINE. [Concomitant]
     Active Substance: LEVOTHYROXINE
  9. TIZANIDINE. [Concomitant]
     Active Substance: TIZANIDINE
  10. PREVACID [Concomitant]
     Active Substance: LANSOPRAZOLE
  11. ROPINIROLE. [Concomitant]
     Active Substance: ROPINIROLE
  12. PROAIR HFA [Concomitant]
     Active Substance: ALBUTEROL SULFATE

REACTIONS (3)
  - Pain [Unknown]
  - Death [Fatal]
  - Malaise [Unknown]

NARRATIVE: CASE EVENT DATE: 20171114
